FAERS Safety Report 25095738 (Version 1)
Quarter: 2025Q1

REPORT INFORMATION
  Report Type: Spontaneous
  Country: US (occurrence: None)
  Receive Date: 20250319
  Receipt Date: 20250319
  Transmission Date: 20250409
  Serious: Yes (Hospitalization)
  Sender: FDA-CTU
  Company Number: None

PATIENT
  Age: 70 Year
  Sex: Female

DRUGS (7)
  1. TERIPARATIDE [Suspect]
     Active Substance: TERIPARATIDE
     Dosage: FREQUENCY : DAILY;?
     Route: 058
     Dates: start: 20240625
  2. CIPROFLOXACN TAB 500MG [Concomitant]
  3. IRON TAB 65MG [Concomitant]
  4. LANTUS SOLOS INJ 100/ML [Concomitant]
  5. LOPERAMIDE CAP 2MG [Concomitant]
  6. METHOTREXATE INJ 25MG/ML [Concomitant]
  7. METRONIDAZOL TAB 500MG [Concomitant]

REACTIONS (1)
  - Hospitalisation [None]

NARRATIVE: CASE EVENT DATE: 20250301
